FAERS Safety Report 18444426 (Version 1)
Quarter: 2020Q4

REPORT INFORMATION
  Report Type: Spontaneous
  Country: CH (occurrence: CH)
  Receive Date: 20201030
  Receipt Date: 20201030
  Transmission Date: 20210114
  Serious: Yes (Hospitalization, Other)
  Sender: FDA-Public Use
  Company Number: CH-TEVA-2020-CH-1843726

PATIENT
  Age: 53 Year
  Sex: Male

DRUGS (9)
  1. FLUDARABINE [Suspect]
     Active Substance: FLUDARABINE PHOSPHATE
     Indication: CHEMOTHERAPY
     Dosage: 25 MG/M2 DAILY; FLUDARABINE 25 MG/M2 PER DAY FOR 5 DAYS
     Route: 065
  2. INTERLEUKIN-2 [Suspect]
     Active Substance: ALDESLEUKIN
     Indication: PRODUCT USED FOR UNKNOWN INDICATION
     Dosage: ONLY TWO DOSES OF HIGH-DOSE INTERLEUKIN-2 720,000 UI/KG PER DOSE WERE GIVEN
     Route: 065
  3. DABRAFENIB [Suspect]
     Active Substance: DABRAFENIB
     Indication: SKIN CANCER METASTATIC
     Route: 065
  4. EPACADOSTAT [Suspect]
     Active Substance: EPACADOSTAT
     Indication: SKIN CANCER METASTATIC
     Route: 065
  5. PEMBROLIZUMAB. [Suspect]
     Active Substance: PEMBROLIZUMAB
     Indication: SKIN CANCER METASTATIC
     Route: 065
  6. IMMUNOGLOBULIN [Concomitant]
     Indication: PRODUCT USED FOR UNKNOWN INDICATION
     Dosage: A SINGLE 5-DAY COURSE OF INTRAVENOUS IMMUNOGLOBULIN (0.4 G/KG/DAY)
     Route: 042
  7. IPILIMUMAB [Suspect]
     Active Substance: IPILIMUMAB
     Indication: SKIN CANCER METASTATIC
     Route: 065
  8. CYCLOPHOSPHAMIDE. [Suspect]
     Active Substance: CYCLOPHOSPHAMIDE
     Indication: CHEMOTHERAPY
     Dosage: 60 MG/KG DAILY; CYCLOPHOSPHAMIDE 60 MG/KG PER DAY FOR 2 DAYS
     Route: 065
  9. TRAMETINIB [Suspect]
     Active Substance: TRAMETINIB
     Indication: SKIN CANCER METASTATIC
     Route: 065

REACTIONS (7)
  - Oliguria [Recovered/Resolved]
  - Drug ineffective [Unknown]
  - Lymphopenia [Recovered/Resolved]
  - Neutropenia [Recovered/Resolved]
  - Acute kidney injury [Recovered/Resolved]
  - Guillain-Barre syndrome [Recovered/Resolved]
  - Cytomegalovirus infection reactivation [Recovered/Resolved]
